FAERS Safety Report 4651801-6 (Version None)
Quarter: 2005Q2

REPORT INFORMATION
  Report Type: 
  Country: None (occurrence: None)
  Receive Date: 20050504
  Receipt Date: 20050118
  Transmission Date: 20051028
  Serious: Yes (Death, Other)
  Sender: FDA-Public Use
  Company Number: PHEH2005US01035

PATIENT
  Age: 87 Year
  Sex: Female

DRUGS (5)
  1. ZOMETA [Suspect]
     Indication: METASTASES TO BONE
     Dosage: 4MG Q4WK
     Dates: start: 20020410, end: 20041228
  2. FEMARA [Concomitant]
     Indication: BREAST CANCER
     Dosage: 2.5 MG, QD
     Dates: start: 20010524, end: 20050101
  3. LOPRESSOR [Concomitant]
  4. LASIX [Concomitant]
  5. POTASSIUM CHLORIDE [Concomitant]

REACTIONS (14)
  - ABSCESS ORAL [None]
  - ATRIAL FIBRILLATION [None]
  - BONE DEBRIDEMENT [None]
  - BONE DISORDER [None]
  - CARDIAC FAILURE CONGESTIVE [None]
  - IMPAIRED HEALING [None]
  - INCISIONAL DRAINAGE [None]
  - INFECTION [None]
  - INFLAMMATION [None]
  - LOCAL ANAESTHESIA [None]
  - LOCAL SWELLING [None]
  - OSTEONECROSIS [None]
  - PAIN [None]
  - TOOTH LOSS [None]
